FAERS Safety Report 8266444-5 (Version None)
Quarter: 2012Q2

REPORT INFORMATION
  Report Type: 
  Country: None (occurrence: None)
  Receive Date: 20120406
  Receipt Date: 20120330
  Transmission Date: 20120825
  Serious: Yes (Death, Life-Threatening, Hospitalization, Disabling, Other)
  Sender: FDA-Public Use
  Company Number: US-MERCK-1203USA01494

PATIENT
  Age: 76 Year
  Sex: Female
  Weight: 108 kg

DRUGS (8)
  1. BYETTA [Suspect]
     Indication: TYPE 2 DIABETES MELLITUS
     Route: 048
     Dates: start: 20070101, end: 20090101
  2. JANUVIA [Suspect]
     Indication: TYPE 2 DIABETES MELLITUS
     Route: 048
     Dates: end: 20090603
  3. GLUCOPHAGE [Concomitant]
     Indication: TYPE 2 DIABETES MELLITUS
     Route: 048
  4. ASPIRIN [Concomitant]
     Route: 065
  5. ENALAPRIL MALEATE [Concomitant]
     Route: 048
  6. JANUMET [Suspect]
     Indication: TYPE 2 DIABETES MELLITUS
     Route: 048
  7. ACTOS [Concomitant]
     Indication: TYPE 2 DIABETES MELLITUS
     Route: 048
     Dates: start: 20040101
  8. CRESTOR [Concomitant]
     Route: 065

REACTIONS (19)
  - DIVERTICULUM [None]
  - ABSCESS [None]
  - PNEUMOTHORAX [None]
  - CARDIAC MURMUR [None]
  - PNEUMOPERITONEUM [None]
  - HAEMORRHAGE [None]
  - ASCITES [None]
  - AORTIC ARTERIOSCLEROSIS [None]
  - INFECTIOUS PERITONITIS [None]
  - PANCREATITIS CHRONIC [None]
  - HYPERLIPIDAEMIA [None]
  - VASCULAR PSEUDOANEURYSM [None]
  - ACUTE RESPIRATORY FAILURE [None]
  - BLOOD GLUCOSE INCREASED [None]
  - PSEUDOCYST [None]
  - PANCREATITIS NECROTISING [None]
  - ABDOMINAL CAVITY DRAINAGE [None]
  - SEPTIC SHOCK [None]
  - MALNUTRITION [None]
